FAERS Safety Report 5447672-0 (Version None)
Quarter: 2007Q3

REPORT INFORMATION
  Report Type: 
  Country: None (occurrence: None)
  Receive Date: 20070906
  Receipt Date: 20070906
  Transmission Date: 20080115
  Serious: Yes (Hospitalization)
  Sender: FDA-Public Use
  Company Number: None

PATIENT
  Age: 64 Year
  Sex: Male
  Weight: 83.5 kg

DRUGS (1)
  1. REVLIMID [Suspect]
     Indication: RENAL CELL CARCINOMA STAGE UNSPECIFIED
     Dosage: 10MG PO X 21 DAYS EVERY 28 DAYS
     Route: 048
     Dates: start: 20041101, end: 20070814

REACTIONS (2)
  - LEUKOPENIA [None]
  - PNEUMONIA [None]
